FAERS Safety Report 7703981-3 (Version None)
Quarter: 2011Q3

REPORT INFORMATION
  Report Type: 
  Country: None (occurrence: None)
  Receive Date: 20110823
  Receipt Date: 20110810
  Transmission Date: 20111222
  Serious: Yes (Hospitalization)
  Sender: FDA-Public Use
  Company Number: US-JNJFOC-20110608799

PATIENT
  Sex: Female

DRUGS (5)
  1. EXTRA STRENGTH TYLENOL PM [Suspect]
     Indication: INSOMNIA
     Route: 048
     Dates: start: 20110608, end: 20110608
  2. METFORMIN HCL [Concomitant]
     Indication: DIABETES MELLITUS
  3. SYNTHROID [Concomitant]
     Indication: THYROID DISORDER
  4. JANUVIA [Concomitant]
     Indication: DIABETES MELLITUS
  5. VITAMIN D [Concomitant]
     Indication: ROUTINE HEALTH MAINTENANCE

REACTIONS (3)
  - HYPERSENSITIVITY [None]
  - HEADACHE [None]
  - THROAT TIGHTNESS [None]
